FAERS Safety Report 11654707 (Version 2)
Quarter: 2015Q4

REPORT INFORMATION
  Report Type: Spontaneous
  Country: US (occurrence: US)
  Receive Date: 20151023
  Receipt Date: 20151228
  Transmission Date: 20160304
  Serious: No
  Sender: FDA-Public Use
  Company Number: US-PFIZER INC-2015353746

PATIENT
  Age: 54 Year
  Sex: Male
  Weight: 57 kg

DRUGS (5)
  1. CHANTIX [Suspect]
     Active Substance: VARENICLINE TARTRATE
     Indication: SMOKING CESSATION THERAPY
     Dosage: 0.5 MG, 1X/DAY
     Route: 048
     Dates: start: 20151017
  2. CHANTIX [Suspect]
     Active Substance: VARENICLINE TARTRATE
     Dosage: UNK
  3. OXYCODONE [Concomitant]
     Active Substance: OXYCODONE
     Indication: PAIN
     Dosage: 7.5 MG, EVERY 6 HOURS AS NEEDED
     Route: 048
     Dates: start: 20151012, end: 20151018
  4. ASPIRIN. [Concomitant]
     Active Substance: ASPIRIN
     Indication: BLOOD PRESSURE SYSTOLIC INCREASED
     Dosage: 80 MG, 1X/DAY
     Route: 048
  5. ZETIA [Concomitant]
     Active Substance: EZETIMIBE
     Indication: BLOOD CHOLESTEROL INCREASED
     Dosage: 10 MG, 1X/DAY
     Route: 048

REACTIONS (1)
  - Mood swings [Unknown]

NARRATIVE: CASE EVENT DATE: 20151017
